FAERS Safety Report 8826001 (Version 1)
Quarter: 2012Q4

REPORT INFORMATION
  Report Type: Report from Study
  Country: CA (occurrence: CA)
  Receive Date: 20121005
  Receipt Date: 20121005
  Transmission Date: 20130627
  Serious: Yes (Other)
  Sender: FDA-Public Use
  Company Number: CA-ROCHE-1135191

PATIENT
  Sex: Female
  Weight: 63.56 kg

DRUGS (8)
  1. MABTHERA [Suspect]
     Indication: POLYMYOSITIS
     Route: 042
     Dates: start: 20120105
  2. ACTONEL [Concomitant]
  3. DIOVAN [Concomitant]
  4. PREDNISONE [Concomitant]
  5. GLUCAGON [Concomitant]
  6. METFORMIN [Concomitant]
  7. VITAMIN D [Concomitant]
  8. CALCIUM [Concomitant]

REACTIONS (1)
  - Blood potassium increased [Recovering/Resolving]
